FAERS Safety Report 9206546 (Version 1)
Quarter: 2013Q2

REPORT INFORMATION
  Report Type: Spontaneous
  Country: US (occurrence: GB)
  Receive Date: 20130403
  Receipt Date: 20130403
  Transmission Date: 20140414
  Serious: Yes (Other)
  Sender: FDA-Public Use
  Company Number: GB-PFIZER INC-2008009029JJ

PATIENT
  Age: 64 Year
  Sex: Female

DRUGS (3)
  1. IBUPROFEN (UNSPECIFIED) [Suspect]
     Indication: JOINT STIFFNESS
     Dosage: 400 MG, 3 IN 1 DAY
     Route: 048
  2. LITHIUM [Suspect]
     Indication: MANIA
     Dosage: 600 MG, 2 IN 1 DAY
     Route: 048
  3. CHLORPROMAZINE [Suspect]
     Indication: MANIA
     Dosage: 300 MG, 1 IN 1 DAY
     Route: 048

REACTIONS (3)
  - Drug level increased [Recovered/Resolved]
  - Blood urea increased [Recovered/Resolved]
  - Blood creatinine increased [Recovered/Resolved]
